FAERS Safety Report 5392399-7 (Version None)
Quarter: 2007Q3

REPORT INFORMATION
  Report Type: 
  Country: None (occurrence: None)
  Receive Date: 20070720
  Receipt Date: 20070716
  Transmission Date: 20080115
  Serious: Yes (Hospitalization)
  Sender: FDA-Public Use
  Company Number: B0473098A

PATIENT
  Age: 8 Year
  Sex: Male

DRUGS (6)
  1. ABACAVIR [Suspect]
     Indication: HIV INFECTION
     Dates: start: 20070504
  2. NEVIRAPINE [Suspect]
     Indication: HIV INFECTION
     Dates: start: 20070504
  3. LAMIVUDINE [Suspect]
     Indication: HIV INFECTION
     Dates: start: 20070504
  4. ZIDOVUDINE [Suspect]
     Indication: HIV INFECTION
     Dates: start: 20070504, end: 20070521
  5. COTRIM [Suspect]
     Dates: end: 20070517
  6. MULTI-VITAMIN [Concomitant]

REACTIONS (22)
  - ABDOMINAL DISTENSION [None]
  - ASTHENIA [None]
  - COUGH [None]
  - DIARRHOEA [None]
  - DRUG HYPERSENSITIVITY [None]
  - FATIGUE [None]
  - FEBRILE NEUTROPENIA [None]
  - HEADACHE [None]
  - HYPERLACTACIDAEMIA [None]
  - MALAISE [None]
  - MOUTH ULCERATION [None]
  - MUCOUS MEMBRANE DISORDER [None]
  - NAUSEA [None]
  - PHARYNGITIS [None]
  - PRURITUS [None]
  - PYREXIA [None]
  - RASH [None]
  - SEPSIS [None]
  - STOMATITIS [None]
  - TRANSAMINASES INCREASED [None]
  - VOMITING [None]
  - WEIGHT DECREASED [None]
